FAERS Safety Report 6597229-3 (Version None)
Quarter: 2010Q1

REPORT INFORMATION
  Report Type: 
  Country: None (occurrence: None)
  Receive Date: 20100223
  Receipt Date: 20100217
  Transmission Date: 20100710
  Serious: Yes (Death)
  Sender: FDA-Public Use
  Company Number: US-GILEAD-2010-0027035

PATIENT
  Sex: Female
  Weight: 59.02 kg

DRUGS (13)
  1. LETAIRIS [Suspect]
     Indication: PULMONARY ARTERIAL HYPERTENSION
     Route: 048
     Dates: start: 20081001
  2. TORSEMIDE [Concomitant]
  3. SPIRONOLACTONE [Concomitant]
  4. XANAX [Concomitant]
  5. DILAUDID [Concomitant]
  6. HUMIRA [Concomitant]
  7. ZANTAC [Concomitant]
  8. CALCIUM + D [Concomitant]
  9. AMITRIPTYLINE HCL [Concomitant]
  10. CELEXA [Concomitant]
  11. COLCHICINE [Concomitant]
  12. KLOR-CON [Concomitant]
  13. LEVOTHYROXINE SODIUM [Concomitant]

REACTIONS (2)
  - CARDIAC ARREST [None]
  - PULMONARY ARTERIAL HYPERTENSION [None]
